FAERS Safety Report 7085355-4 (Version None)
Quarter: 2010Q4

REPORT INFORMATION
  Report Type: 
  Country: None (occurrence: None)
  Receive Date: 20101105
  Receipt Date: 20101027
  Transmission Date: 20110411
  Serious: Yes (Other)
  Sender: FDA-Public Use
  Company Number: US-ASTRAZENECA-2010SE51214

PATIENT
  Age: 58 Year
  Sex: Female
  Weight: 50.8 kg

DRUGS (12)
  1. TOPROL-XL [Suspect]
     Indication: HYPERTENSION
     Route: 048
  2. TOPROL-XL [Suspect]
     Route: 048
  3. TOPROL-XL [Suspect]
     Route: 048
  4. TOPROL-XL [Suspect]
     Route: 048
  5. LIPITOR [Suspect]
     Indication: HYPERCHOLESTEROLAEMIA
     Dates: start: 20091101, end: 20100307
  6. LIPITOR [Suspect]
     Dates: start: 20100321, end: 20100513
  7. NEURONTIN [Concomitant]
  8. CELEBREX [Concomitant]
     Indication: ARTHRITIS
  9. ASPIRIN [Concomitant]
  10. DIOVAN [Concomitant]
     Indication: HYPERTENSION
  11. SYNTHROID [Concomitant]
     Indication: HYPOTHYROIDISM
  12. KLONOPIN [Concomitant]

REACTIONS (10)
  - ARTHRALGIA [None]
  - BACK PAIN [None]
  - BLOOD PRESSURE DECREASED [None]
  - DIZZINESS [None]
  - HEPATIC ENZYME INCREASED [None]
  - INFLUENZA [None]
  - MUSCULOSKELETAL CHEST PAIN [None]
  - MYALGIA [None]
  - PAIN IN EXTREMITY [None]
  - THYROID FUNCTION TEST ABNORMAL [None]
